FAERS Safety Report 13167211 (Version 2)
Quarter: 2017Q1

REPORT INFORMATION
  Report Type: Spontaneous
  Country: IT (occurrence: IT)
  Receive Date: 20170131
  Receipt Date: 20170304
  Transmission Date: 20170428
  Serious: Yes (Hospitalization, Other)
  Sender: FDA-Public Use
  Company Number: IT-AUROBINDO-AUR-APL-2017-28699

PATIENT
  Age: 18 Month
  Sex: Male
  Weight: 12 kg

DRUGS (2)
  1. PARACETAMOL [Suspect]
     Active Substance: ACETAMINOPHEN
     Indication: BODY TEMPERATURE INCREASED
  2. PARACETAMOL [Suspect]
     Active Substance: ACETAMINOPHEN
     Indication: DISCOMFORT
     Dosage: 6 ML, CORRESPONDING TO 12 MG/KG
     Route: 042

REACTIONS (3)
  - Diarrhoea [Recovered/Resolved]
  - Vomiting [Recovered/Resolved]
  - Incorrect route of drug administration [Recovered/Resolved]
